FAERS Safety Report 10983979 (Version 1)
Quarter: 2015Q2

REPORT INFORMATION
  Report Type: Spontaneous
  Country: DK (occurrence: DK)
  Receive Date: 20150403
  Receipt Date: 20150403
  Transmission Date: 20150821
  Serious: Yes (Hospitalization)
  Sender: FDA-Public Use
  Company Number: DK-ASTRAZENECA-2015SE30424

PATIENT
  Sex: Female

DRUGS (2)
  1. FURIX [Concomitant]
     Active Substance: FUROSEMIDE
  2. FORXIGA [Suspect]
     Active Substance: DAPAGLIFLOZIN
     Indication: DIABETES MELLITUS
     Route: 048

REACTIONS (3)
  - Blood creatinine abnormal [Unknown]
  - Polyuria [Unknown]
  - Sepsis [Unknown]
